FAERS Safety Report 18315189 (Version 5)
Quarter: 2021Q3

REPORT INFORMATION
  Report Type: Report from Study
  Country: US (occurrence: US)
  Receive Date: 20200926
  Receipt Date: 20210803
  Transmission Date: 20211014
  Serious: Yes (Other)
  Sender: FDA-Public Use
  Company Number: US-SHIRE-US202031248

PATIENT
  Age: 61 Year
  Sex: Female
  Weight: 84 kg

DRUGS (27)
  1. MARINOL [ALLOPURINOL] [Concomitant]
     Active Substance: ALLOPURINOL
  2. SINGULAIR [Concomitant]
     Active Substance: MONTELUKAST SODIUM
  3. GLUCOSAMINE + CHONDORITIN [Concomitant]
  4. VITAMIN D3 [Concomitant]
     Active Substance: CHOLECALCIFEROL
  5. RESVERATROL [Concomitant]
     Active Substance: DIETARY SUPPLEMENT\RESVERATROL
  6. ACETAMINOPHEN. [Concomitant]
     Active Substance: ACETAMINOPHEN
  7. LORATADINE. [Concomitant]
     Active Substance: LORATADINE
  8. MAGNESIUM [Concomitant]
     Active Substance: MAGNESIUM
  9. OMEGA 3 COMPLETE [Concomitant]
  10. EPINEPHRINE. [Concomitant]
     Active Substance: EPINEPHRINE
  11. BUPROPION. [Concomitant]
     Active Substance: BUPROPION
  12. XIFAXAN [Concomitant]
     Active Substance: RIFAXIMIN
  13. CRANACTIN [Concomitant]
     Active Substance: DIETARY SUPPLEMENT
  14. DIPHENHYDRAMINE. [Concomitant]
     Active Substance: DIPHENHYDRAMINE
  15. ALBUTEROL SULFATE. [Concomitant]
     Active Substance: ALBUTEROL SULFATE
  16. ESTRING [Concomitant]
     Active Substance: ESTRADIOL
  17. ASPIRIN [ACETYLSALICYLIC ACID] [Concomitant]
     Active Substance: ASPIRIN
  18. VITAMIN C [Concomitant]
     Active Substance: ASCORBIC ACID
  19. PROBIOTICS NOS [Concomitant]
     Active Substance: PROBIOTICS NOS
  20. CRESTOR [Concomitant]
     Active Substance: ROSUVASTATIN CALCIUM
  21. CUVITRU [Suspect]
     Active Substance: HUMAN IMMUNOGLOBULIN G
     Indication: IMMUNODEFICIENCY COMMON VARIABLE
     Dosage: 13 GRAM, 1/WEEK
     Route: 058
     Dates: start: 20170310
  22. LIDOCAINE. [Concomitant]
     Active Substance: LIDOCAINE
  23. MEDROL [METHYLPREDNISOLONE ACETATE] [Concomitant]
     Active Substance: METHYLPREDNISOLONE ACETATE
  24. BUDESONIDE. [Concomitant]
     Active Substance: BUDESONIDE
  25. MULTIVITAMINS [VITAMINS NOS] [Concomitant]
     Active Substance: VITAMINS
  26. VITAMIN E [Concomitant]
     Active Substance: .ALPHA.-TOCOPHEROL
  27. CELADRIN [Concomitant]
     Active Substance: MENTHOL

REACTIONS (7)
  - Discomfort [Unknown]
  - Abdominal discomfort [Unknown]
  - COVID-19 [Unknown]
  - Sinusitis [Unknown]
  - Pruritus [Unknown]
  - Bacterial infection [Unknown]
  - Tooth infection [Unknown]

NARRATIVE: CASE EVENT DATE: 20201103
